FAERS Safety Report 6715050-X (Version None)
Quarter: 2010Q2

REPORT INFORMATION
  Report Type: 
  Country: None (occurrence: None)
  Receive Date: 20100507
  Receipt Date: 20100426
  Transmission Date: 20101027
  Serious: Yes (Other)
  Sender: FDA-Public Use
  Company Number: FR-PFIZER INC-2010052957

PATIENT

DRUGS (2)
  1. VORICONAZOLE [Suspect]
  2. METHOTREXATE SODIUM [Interacting]

REACTIONS (3)
  - DRUG INTERACTION [None]
  - NEPHROPATHY TOXIC [None]
  - RENAL NECROSIS [None]
